FAERS Safety Report 15987379 (Version 2)
Quarter: 2019Q2

REPORT INFORMATION
  Report Type: Spontaneous
  Country: AU (occurrence: AU)
  Receive Date: 20190220
  Receipt Date: 20190402
  Transmission Date: 20190711
  Serious: Yes (Hospitalization, Other)
  Sender: FDA-Public Use
  Company Number: AU-PFIZER INC-2019058233

PATIENT
  Age: 63 Year
  Sex: Male

DRUGS (1)
  1. FENTANYL CITRATE. [Suspect]
     Active Substance: FENTANYL CITRATE
     Indication: RENAL PAIN
     Dosage: UNK
     Dates: start: 201705, end: 201705

REACTIONS (2)
  - Nausea [Unknown]
  - Seizure [Unknown]

NARRATIVE: CASE EVENT DATE: 201705
